FAERS Safety Report 17552562 (Version 1)
Quarter: 2020Q1

REPORT INFORMATION
  Report Type: Spontaneous
  Country: FR (occurrence: FR)
  Receive Date: 20200317
  Receipt Date: 20200317
  Transmission Date: 20200409
  Serious: Yes (Hospitalization)
  Sender: FDA-Public Use
  Company Number: FR-009507513-2003FRA005912

PATIENT
  Age: 53 Year
  Sex: Male

DRUGS (11)
  1. KARDEGIC [Concomitant]
     Active Substance: ASPIRIN DL-LYSINE
     Dosage: 1 DOSAGE FORM, QD, FORMULATION: POWDER FOR ORAL SOLUTION IN SACHET
     Route: 048
  2. METFORMIN [Concomitant]
     Active Substance: METFORMIN HYDROCHLORIDE
     Dosage: DOSE: 2550 MILLIGRAM, QD
     Route: 048
  3. POLYETHYLENE GLYCOL 4000 [Concomitant]
     Active Substance: POLYETHYLENE GLYCOL 4000
     Dosage: 2 DOSAGE FORM, QD
     Route: 048
  4. ATORVASTATIN [Concomitant]
     Active Substance: ATORVASTATIN
     Dosage: 40 MILLIGRAM, QD
     Route: 048
  5. NORSET [Suspect]
     Active Substance: MIRTAZAPINE
     Indication: PRODUCT USED FOR UNKNOWN INDICATION
     Dosage: 1 DOSAGE FORM, QD, FORMULATION: FILM COATED TABLET
     Route: 048
     Dates: start: 2019, end: 20190724
  6. XATRAL LP [Concomitant]
     Active Substance: ALFUZOSIN
     Dosage: 1 DOSAGE FORM, QD
     Route: 048
  7. VICTOZA [Concomitant]
     Active Substance: LIRAGLUTIDE
     Dosage: 1.8 MILLIGRAM, QD
     Route: 058
  8. TANGANIL [Concomitant]
     Active Substance: ACETYLLEUCINE
     Dosage: 4 DOSAGE FORM, QD
     Route: 048
  9. ABASAGLAR [Concomitant]
     Active Substance: INSULIN GLARGINE
     Dosage: 58 INTERNATIONAL UNIT, QD
     Route: 058
  10. HUMALOG [Concomitant]
     Active Substance: INSULIN LISPRO
     Dosage: 48 INTERNATIONAL UNIT, QD
     Route: 058
  11. BETASERC [Concomitant]
     Active Substance: BETAHISTINE
     Dosage: 2 DOSAGE FORM, QD
     Route: 048

REACTIONS (3)
  - Hypoacusis [Recovered/Resolved]
  - Dizziness [Recovered/Resolved]
  - Balance disorder [Recovered/Resolved]

NARRATIVE: CASE EVENT DATE: 20190724
